FAERS Safety Report 8492206-X (Version None)
Quarter: 2012Q3

REPORT INFORMATION
  Report Type: 
  Country: None (occurrence: None)
  Receive Date: 20120706
  Receipt Date: 20120628
  Transmission Date: 20120928
  Serious: Yes (Hospitalization)
  Sender: FDA-Public Use
  Company Number: US-BAYER-2012-065668

PATIENT
  Age: 30 Year
  Sex: Female

DRUGS (2)
  1. YAZ [Suspect]
  2. DROSPIRENONE AND ETHINYL ESTRADIOL [Suspect]

REACTIONS (1)
  - SUBARACHNOID HAEMORRHAGE [None]
